FAERS Safety Report 7121617-X (Version None)
Quarter: 2010Q4

REPORT INFORMATION
  Report Type: 
  Country: None (occurrence: None)
  Receive Date: 20101124
  Receipt Date: 20101111
  Transmission Date: 20110411
  Serious: No
  Sender: FDA-Public Use
  Company Number: US-PFIZER INC-2010149596

PATIENT
  Sex: Male
  Weight: 90.718 kg

DRUGS (6)
  1. PRISTIQ [Suspect]
     Dosage: UNK
     Dates: start: 20101001
  2. VENLAFAXINE [Suspect]
     Indication: DEPRESSION
     Dosage: 75 MG, 2X/DAY
     Route: 048
     Dates: start: 20101101, end: 20101101
  3. METHADONE [Concomitant]
     Dosage: UNK
  4. LORAZEPAM [Concomitant]
     Dosage: UNK
  5. PREVACID [Concomitant]
     Dosage: UNK
  6. METOPROLOL TARTRATE [Concomitant]
     Indication: HYPERTENSION
     Dosage: UNK

REACTIONS (5)
  - ABNORMAL DREAMS [None]
  - HALLUCINATION [None]
  - HALLUCINATION, AUDITORY [None]
  - PHOTOPSIA [None]
  - UNEVALUABLE EVENT [None]
